FAERS Safety Report 16945543 (Version 2)
Quarter: 2019Q4

REPORT INFORMATION
  Report Type: Spontaneous
  Country: AR (occurrence: AR)
  Receive Date: 20191022
  Receipt Date: 20191121
  Transmission Date: 20200122
  Serious: Yes (Other)
  Sender: FDA-Public Use
  Company Number: AR-MYLANLABS-2019M1087621

PATIENT
  Age: 26 Year
  Sex: Male

DRUGS (1)
  1. LAPENAX [Suspect]
     Active Substance: CLOZAPINE
     Indication: PRODUCT USED FOR UNKNOWN INDICATION
     Dosage: UNK
     Dates: start: 20130724

REACTIONS (4)
  - Leukopenia [Recovered/Resolved]
  - Neutrophil count increased [Recovering/Resolving]
  - Neutrophil count decreased [Recovered/Resolved]
  - Leukocytosis [Recovering/Resolving]

NARRATIVE: CASE EVENT DATE: 20190911
